FAERS Safety Report 6355783-0 (Version None)
Quarter: 2009Q3

REPORT INFORMATION
  Report Type: 
  Country: None (occurrence: None)
  Receive Date: 20090915
  Receipt Date: 20090903
  Transmission Date: 20100115
  Serious: Yes (Hospitalization, Other)
  Sender: FDA-Public Use
  Company Number: US-CELGENEUS-163-21880-09050542

PATIENT
  Sex: Male

DRUGS (3)
  1. REVLIMID [Suspect]
     Route: 048
     Dates: start: 20090201, end: 20090101
  2. REVLIMID [Suspect]
     Route: 048
     Dates: start: 20090601, end: 20090601
  3. REVLIMID [Suspect]
     Route: 048
     Dates: start: 20090601, end: 20090701

REACTIONS (4)
  - ARTHRITIS INFECTIVE [None]
  - FALL [None]
  - JOINT INJURY [None]
  - PANCYTOPENIA [None]
